FAERS Safety Report 5401537-9 (Version None)
Quarter: 2007Q3

REPORT INFORMATION
  Report Type: 
  Country: None (occurrence: None)
  Receive Date: 20070731
  Receipt Date: 20070720
  Transmission Date: 20080115
  Serious: Yes (Hospitalization)
  Sender: FDA-Public Use
  Company Number: FR-ROCHE-508514

PATIENT
  Age: 59 Year
  Sex: Male

DRUGS (8)
  1. CELLCEPT [Suspect]
     Indication: DRUG USE FOR UNKNOWN INDICATION
     Route: 048
     Dates: start: 20070205
  2. SOLU-MEDROL [Suspect]
     Indication: DRUG USE FOR UNKNOWN INDICATION
     Route: 048
     Dates: start: 20060101
  3. MESTINON [Concomitant]
     Dates: start: 20060101
  4. POTASSIUM CHLORIDE [Concomitant]
  5. OMEPRAZOLE [Concomitant]
  6. CACIT D3 [Concomitant]
  7. IRBESARTAN [Concomitant]
  8. MEDIATENSYL [Concomitant]
     Dates: start: 20070301

REACTIONS (1)
  - SCAR [None]
